FAERS Safety Report 9629817 (Version 2)
Quarter: 2014Q1

REPORT INFORMATION
  Report Type: Spontaneous
  Country: US (occurrence: US)
  Receive Date: 20131017
  Receipt Date: 20140203
  Transmission Date: 20141002
  Serious: Yes (Other)
  Sender: FDA-Public Use
  Company Number: US-BRISTOL-MYERS SQUIBB COMPANY-19516186

PATIENT
  Age: 82 Year
  Sex: Female
  Weight: 46.26 kg

DRUGS (2)
  1. ELIQUIS [Suspect]
     Indication: CARDIAC OPERATION
     Dates: start: 201306
  2. CARDIZEM [Concomitant]

REACTIONS (3)
  - Loss of consciousness [Unknown]
  - Hypotension [Unknown]
  - Asthenia [Unknown]
